FAERS Safety Report 4883764-2 (Version None)
Quarter: 2006Q1

REPORT INFORMATION
  Report Type: 
  Country: None (occurrence: None)
  Receive Date: 20060113
  Receipt Date: 20051228
  Transmission Date: 20060701
  Serious: Yes (Other)
  Sender: FDA-Public Use
  Company Number: US200512004452

PATIENT
  Age: 85 Year
  Sex: Female

DRUGS (2)
  1. FORTEO [Suspect]
  2. FORTEO [Concomitant]

REACTIONS (4)
  - FALL [None]
  - HEAD INJURY [None]
  - PHARMACEUTICAL PRODUCT COMPLAINT [None]
  - SKULL FRACTURE [None]
